FAERS Safety Report 17246801 (Version 2)
Quarter: 2020Q1

REPORT INFORMATION
  Report Type: Report from Study
  Country: GB (occurrence: GB)
  Receive Date: 20200108
  Receipt Date: 20200206
  Transmission Date: 20200409
  Serious: Yes (Life-Threatening, Hospitalization)
  Sender: FDA-Public Use
  Company Number: GB-PFIZER INC-2018475473

PATIENT
  Age: 44 Year
  Sex: Female
  Weight: 60.5 kg

DRUGS (6)
  1. GEMCITABINE HYDROCHLORIDE. [Suspect]
     Active Substance: GEMCITABINE HYDROCHLORIDE
     Indication: LUNG ADENOCARCINOMA
     Dosage: 100 MG/M2, (28-DAY CYCLIC, ON DAYS 1, 8 AND 15)
     Route: 042
     Dates: start: 20180403
  2. SRA737 [Suspect]
     Active Substance: INVESTIGATIONAL PRODUCT
     Dosage: 500 MG, ON DAYS 2, 3, 9, 10, 16 AND 17 OF EACH 28 DAY CYCLE
     Route: 048
     Dates: start: 20180404, end: 20181101
  3. SRA737 [Suspect]
     Active Substance: INVESTIGATIONAL PRODUCT
     Indication: LUNG ADENOCARCINOMA
     Dosage: 500 MG, SINGLE DAY-7
     Route: 048
     Dates: start: 20180327, end: 20180327
  4. SRA737 [Suspect]
     Active Substance: INVESTIGATIONAL PRODUCT
     Dosage: 500 MG, ON DAYS 2, 3, 9, 10, 16 AND 17 OF EACH 28 DAY CYCLE
     Route: 048
     Dates: start: 20181205
  5. GEMCITABINE HYDROCHLORIDE. [Suspect]
     Active Substance: GEMCITABINE HYDROCHLORIDE
     Dosage: 75 MG/M2, ON DAY 8 AND 15 OF EACH 28-DAY CYCLE
     Route: 042
     Dates: start: 20180410, end: 20181030
  6. GEMCITABINE HYDROCHLORIDE. [Suspect]
     Active Substance: GEMCITABINE HYDROCHLORIDE
     Dosage: 75 MG/M2, (28-DAY CYCLIC, ON DAYS 1, 8 AND 15)
     Route: 042
     Dates: start: 20181204

REACTIONS (3)
  - Pulmonary embolism [Recovered/Resolved]
  - Febrile neutropenia [Recovered/Resolved]
  - Bronchitis [Recovered/Resolved]

NARRATIVE: CASE EVENT DATE: 20181105
